FAERS Safety Report 23205386 (Version 1)
Quarter: 2023Q4

REPORT INFORMATION
  Report Type: Spontaneous
  Country: JP (occurrence: JP)
  Receive Date: 20231120
  Receipt Date: 20231120
  Transmission Date: 20240110
  Serious: No
  Sender: FDA-Public Use
  Company Number: JP-WW-2023-08262-LUN

PATIENT
  Age: 8 Decade
  Sex: Male

DRUGS (3)
  1. LUNESTA [Suspect]
     Active Substance: ESZOPICLONE
     Indication: Insomnia
     Route: 048
  2. Tsumura [Concomitant]
     Route: 048
  3. Tophisopam [Concomitant]
     Indication: Autonomic nervous system imbalance
     Route: 048

REACTIONS (2)
  - Insomnia [Unknown]
  - Fixed eruption [Unknown]

NARRATIVE: CASE EVENT DATE: 20231001
